FAERS Safety Report 19775057 (Version 1)
Quarter: 2021Q3

REPORT INFORMATION
  Report Type: Other
  Country: GB (occurrence: GB)
  Receive Date: 20210901
  Receipt Date: 20210901
  Transmission Date: 20211014
  Serious: Yes (Other)
  Sender: FDA-Public Use
  Company Number: GB-MACLEODS PHARMA UK LTD-MAC2021032491

PATIENT

DRUGS (2)
  1. OMEPRAZOL [Concomitant]
     Active Substance: OMEPRAZOLE
     Indication: ILL-DEFINED DISORDER
     Dosage: UNK
     Route: 065
  2. PANTOPRAZOLE [Suspect]
     Active Substance: PANTOPRAZOLE
     Indication: BARRETT^S OESOPHAGUS
     Dosage: 1 DOSAGE FORM, QD, START DATE: 16 AUG 2021
     Route: 048

REACTIONS (3)
  - Back pain [Not Recovered/Not Resolved]
  - Renal pain [Not Recovered/Not Resolved]
  - Adverse drug reaction [Not Recovered/Not Resolved]

NARRATIVE: CASE EVENT DATE: 20210816
